FAERS Safety Report 19643105 (Version 2)
Quarter: 2021Q3

REPORT INFORMATION
  Report Type: Spontaneous
  Country: CA (occurrence: CA)
  Receive Date: 20210731
  Receipt Date: 20210825
  Transmission Date: 20211014
  Serious: Yes (Other)
  Sender: FDA-Public Use
  Company Number: NVSC2021CA169507

PATIENT
  Sex: Female

DRUGS (4)
  1. DULOXETINE. [Suspect]
     Active Substance: DULOXETINE
     Indication: PRODUCT USED FOR UNKNOWN INDICATION
     Dosage: 60 MG, BID (2 CAPSULES REGULARLY)
     Route: 065
  2. DEXILANT [Concomitant]
     Active Substance: DEXLANSOPRAZOLE
     Indication: PRODUCT USED FOR UNKNOWN INDICATION
     Dosage: 60 MG FOR 30 DAYS
     Route: 065
     Dates: start: 20210612
  3. BUPROPION. [Suspect]
     Active Substance: BUPROPION
     Indication: NEURALGIA
     Dosage: 150 MG, BID (2X/DAY)
     Route: 048
     Dates: start: 20200612, end: 20210716
  4. ZOPICLONE [Concomitant]
     Active Substance: ZOPICLONE
     Indication: PRODUCT USED FOR UNKNOWN INDICATION
     Dosage: 7.5 MG, QD (AT BEDTIME REGULARLY)
     Route: 065

REACTIONS (1)
  - Gingival discolouration [Recovering/Resolving]
